FAERS Safety Report 17678567 (Version 1)
Quarter: 2020Q2

REPORT INFORMATION
  Report Type: Spontaneous
  Country: US (occurrence: US)
  Receive Date: 20200417
  Receipt Date: 20200417
  Transmission Date: 20200714
  Serious: Yes (Hospitalization)
  Sender: FDA-Public Use
  Company Number: US-CELGENEUS-USA-20200404675

PATIENT
  Sex: Male

DRUGS (2)
  1. REVLIMID [Suspect]
     Active Substance: LENALIDOMIDE
     Indication: OFF LABEL USE
  2. REVLIMID [Suspect]
     Active Substance: LENALIDOMIDE
     Indication: HODGKIN^S DISEASE LYMPHOCYTE PREDOMINANCE STAGE I SITE UNSPEC
     Dosage: 20 MILLIGRAM
     Route: 048
     Dates: start: 20200319

REACTIONS (1)
  - Organ failure [Unknown]

NARRATIVE: CASE EVENT DATE: 2020
